FAERS Safety Report 23543530 (Version 2)
Quarter: 2024Q1

REPORT INFORMATION
  Report Type: Report from Study
  Country: CA (occurrence: CA)
  Receive Date: 20240220
  Receipt Date: 20240227
  Transmission Date: 20240409
  Serious: Yes (Death, Other)
  Sender: FDA-Public Use
  Company Number: CA-TAKEDA-2024TUS014694

PATIENT
  Age: 49 Year
  Sex: Male

DRUGS (1)
  1. VEDOLIZUMAB [Suspect]
     Active Substance: VEDOLIZUMAB
     Indication: Graft versus host disease in gastrointestinal tract
     Dosage: 300 MILLIGRAM
     Route: 042
     Dates: start: 20240202, end: 20240216

REACTIONS (3)
  - Death [Fatal]
  - Faecal volume increased [Unknown]
  - Off label use [Unknown]

NARRATIVE: CASE EVENT DATE: 20240202
